FAERS Safety Report 4409462-7 (Version None)
Quarter: 2004Q3

REPORT INFORMATION
  Report Type: 
  Country: None (occurrence: None)
  Receive Date: 20040723
  Receipt Date: 20040712
  Transmission Date: 20050211
  Serious: Yes (Death)
  Sender: FDA-Public Use
  Company Number: US-2004-028624

PATIENT
  Sex: Male

DRUGS (1)
  1. CAMPATH [Suspect]
     Indication: CHRONIC LYMPHOCYTIC LEUKAEMIA

REACTIONS (5)
  - ABDOMINAL PAIN [None]
  - ASCITES [None]
  - METASTASES TO LIVER [None]
  - METASTASES TO SPLEEN [None]
  - METASTATIC MALIGNANT MELANOMA [None]
